FAERS Safety Report 5152476-2 (Version None)
Quarter: 2006Q4

REPORT INFORMATION
  Report Type: 
  Country: None (occurrence: None)
  Receive Date: 20061116
  Receipt Date: 20061103
  Transmission Date: 20070319
  Serious: Yes (Other)
  Sender: FDA-Public Use
  Company Number: US-ELI_LILLY_AND_COMPANY-US200611000685

PATIENT
  Sex: Female

DRUGS (3)
  1. HUMALOG [Suspect]
     Indication: DIABETES MELLITUS NON-INSULIN-DEPENDENT
     Dosage: 20 4/D
     Dates: start: 20060301
  2. LANTUS [Concomitant]
     Indication: DIABETES MELLITUS NON-INSULIN-DEPENDENT
     Dosage: 20 U, EACH MORNING
  3. LANTUS [Concomitant]
     Dosage: 100 U, EACH EVENING, AT NIGHT

REACTIONS (3)
  - BRONCHITIS CHRONIC [None]
  - DYSPNOEA EXERTIONAL [None]
  - TREMOR [None]
